FAERS Safety Report 18186775 (Version 4)
Quarter: 2020Q4

REPORT INFORMATION
  Report Type: Spontaneous
  Country: US (occurrence: US)
  Receive Date: 20200824
  Receipt Date: 20201217
  Transmission Date: 20210113
  Serious: Yes (Other)
  Sender: FDA-Public Use
  Company Number: US-PFIZER INC-2020325805

PATIENT
  Age: 54 Year
  Sex: Female

DRUGS (2)
  1. IBRANCE [Suspect]
     Active Substance: PALBOCICLIB
     Indication: BREAST CANCER FEMALE
     Dosage: 75 MG
     Dates: start: 20200401, end: 2020
  2. IBRANCE [Suspect]
     Active Substance: PALBOCICLIB
     Dosage: 75 MG, CYCLIC (EVERY DAY X 21 DAYS Q 28 DAYS)
     Route: 048
     Dates: start: 20200825

REACTIONS (4)
  - Neutropenia [Unknown]
  - White blood cell count decreased [Recovered/Resolved]
  - Alopecia [Not Recovered/Not Resolved]
  - Blood count abnormal [Unknown]

NARRATIVE: CASE EVENT DATE: 2020
